FAERS Safety Report 21930769 (Version 1)
Quarter: 2023Q1

REPORT INFORMATION
  Report Type: Spontaneous
  Country: US (occurrence: US)
  Receive Date: 20230131
  Receipt Date: 20230131
  Transmission Date: 20230417
  Serious: Yes (Other)
  Sender: FDA-Public Use
  Company Number: US-002147023-NVSC2023US018293

PATIENT
  Sex: Female

DRUGS (9)
  1. ANASTROZOLE [Suspect]
     Active Substance: ANASTROZOLE
     Indication: Triple negative breast cancer
     Dosage: UNK
     Route: 065
  2. ANASTROZOLE [Suspect]
     Active Substance: ANASTROZOLE
     Indication: Metastases to lung
  3. LETROZOLE [Suspect]
     Active Substance: LETROZOLE
     Indication: Triple negative breast cancer
     Dosage: UNK
     Route: 065
  4. PALBOCICLIB [Suspect]
     Active Substance: PALBOCICLIB
     Indication: Triple negative breast cancer
     Dosage: 75 MG
     Route: 065
     Dates: start: 20190729
  5. PALBOCICLIB [Suspect]
     Active Substance: PALBOCICLIB
     Indication: Metastases to lung
     Dosage: 100 MG
     Route: 065
  6. PALBOCICLIB [Suspect]
     Active Substance: PALBOCICLIB
     Dosage: 125 MG
     Route: 065
  7. PALBOCICLIB [Suspect]
     Active Substance: PALBOCICLIB
     Dosage: 100 MG
     Route: 065
     Dates: start: 20200909
  8. EXEMESTANE [Suspect]
     Active Substance: EXEMESTANE
     Indication: Triple negative breast cancer
     Dosage: UNK
     Route: 065
  9. EXEMESTANE [Suspect]
     Active Substance: EXEMESTANE
     Indication: Metastases to lung

REACTIONS (4)
  - Neutropenia [Unknown]
  - Lymphoedema [Unknown]
  - Pain in extremity [Unknown]
  - Drug intolerance [Unknown]
